FAERS Safety Report 10192992 (Version 2)
Quarter: 2014Q3

REPORT INFORMATION
  Report Type: Spontaneous
  Country: IL (occurrence: IL)
  Receive Date: 20140524
  Receipt Date: 20140730
  Transmission Date: 20150326
  Serious: Yes (Death, Other)
  Sender: FDA-Public Use
  Company Number: PHHY2014IL062650

PATIENT
  Sex: Female

DRUGS (1)
  1. ACLASTA [Suspect]
     Active Substance: ZOLEDRONIC ACID
     Indication: OSTEOPOROSIS
     Dosage: 5 MG, ONCE IN A YEAR
     Route: 042

REACTIONS (6)
  - Osteoporosis [Unknown]
  - Gastrointestinal ischaemia [Not Recovered/Not Resolved]
  - Scleroderma [Unknown]
  - Necrosis [Not Recovered/Not Resolved]
  - Death [Fatal]
  - Peripheral ischaemia [Not Recovered/Not Resolved]
